FAERS Safety Report 10197826 (Version 2)
Quarter: 2014Q2

REPORT INFORMATION
  Report Type: Spontaneous
  Country: US (occurrence: US)
  Receive Date: 20140527
  Receipt Date: 20140617
  Transmission Date: 20141212
  Serious: Yes (Death, Other)
  Sender: FDA-Public Use
  Company Number: US-GILEAD-2014-0103202

PATIENT
  Age: 51 Year
  Sex: Male
  Weight: 65.31 kg

DRUGS (4)
  1. STRIBILD [Suspect]
     Indication: HIV INFECTION
     Dosage: 1 DF, UNK
     Route: 048
     Dates: start: 20140415, end: 20140519
  2. LISINOPRIL /00894002/ [Suspect]
     Indication: HYPERTENSION
     Dosage: 10 MG, UNK
     Route: 048
     Dates: start: 20140415, end: 20140519
  3. ESTRADIOL [Concomitant]
     Indication: GENDER IDENTITY DISORDER
     Dosage: UNK
     Dates: start: 20131122, end: 20140519
  4. SPIRONOLACTONE [Concomitant]
     Indication: GENDER IDENTITY DISORDER
     Dosage: UNK
     Dates: start: 20131122, end: 20140519

REACTIONS (2)
  - Myocardial infarction [Fatal]
  - Cardiac arrest [None]
